FAERS Safety Report 6207357-X (Version None)
Quarter: 2009Q2

REPORT INFORMATION
  Report Type: 
  Country: None (occurrence: None)
  Receive Date: 20090528
  Receipt Date: 20090519
  Transmission Date: 20091009
  Serious: Yes (Life-Threatening)
  Sender: FDA-Public Use
  Company Number: JP-PFIZER INC-2009186536

PATIENT
  Age: 82 Year

DRUGS (12)
  1. ATENOLOL [Suspect]
     Indication: HYPERTENSION
     Dosage: 50 MG, 1X/DAY
     Route: 048
     Dates: start: 20051205, end: 20061001
  2. ATENOLOL [Suspect]
     Dosage: 100 MG, 1X/DAY
     Route: 048
     Dates: start: 20061002
  3. AMLODIPINE [Suspect]
     Indication: HYPERTENSION
     Dosage: 5 MG, 1X/DAY
     Route: 048
     Dates: start: 20070319, end: 20070819
  4. AMLODIPINE [Suspect]
     Dosage: 10 MG, 1X/DAY
     Route: 048
     Dates: start: 20070820
  5. BLOPRESS [Suspect]
     Indication: HYPERTENSION
     Dosage: 12 MG, 1X/DAY
     Route: 048
     Dates: start: 20051227
  6. ASPIRIN [Concomitant]
     Dosage: 100 MG, 1X/DAY
     Route: 048
     Dates: start: 20020723
  7. CLARITHROMYCIN [Concomitant]
     Dosage: 200 MG, 1X/DAY
     Route: 048
     Dates: start: 20061030
  8. LEVOTHYROXINE SODIUM [Concomitant]
     Indication: THYROID CANCER
     Dosage: 50 UG, 1X/DAY
     Route: 048
     Dates: start: 20061127
  9. LEVOTHYROXINE SODIUM [Concomitant]
     Indication: GOITRE
  10. DEPAS [Concomitant]
     Dosage: 1 MG, 1X/DAY
     Route: 048
     Dates: start: 20070115
  11. SEREVENT [Concomitant]
     Dosage: 1 DF, 2X/DAY
     Route: 055
     Dates: start: 20070219
  12. OMEPRAZOLE [Concomitant]
     Dosage: 20 MG, 1X/DAY
     Route: 048
     Dates: start: 20071210

REACTIONS (5)
  - ATRIAL FIBRILLATION [None]
  - BRADYCARDIA [None]
  - HYPERKALAEMIA [None]
  - RENAL FAILURE ACUTE [None]
  - SHOCK [None]
